FAERS Safety Report 7523262-0 (Version None)
Quarter: 2011Q2

REPORT INFORMATION
  Report Type: 
  Country: None (occurrence: None)
  Receive Date: 20110603
  Receipt Date: 20110518
  Transmission Date: 20111010
  Serious: Yes (Hospitalization)
  Sender: FDA-Public Use
  Company Number: A0790824A

PATIENT
  Age: 48 Year
  Sex: Female
  Weight: 78.2 kg

DRUGS (6)
  1. GLIPIZIDE [Concomitant]
  2. AVANDAMET [Suspect]
     Route: 048
     Dates: start: 20050601, end: 20061013
  3. LIPITOR [Concomitant]
  4. AVANDIA [Suspect]
     Dosage: 4MG UNKNOWN
     Route: 048
  5. ASPIRIN [Concomitant]
  6. NITROGLYCERIN [Concomitant]

REACTIONS (3)
  - CARDIAC FAILURE CONGESTIVE [None]
  - MYOCARDIAL INFARCTION [None]
  - MYOCARDIAL ISCHAEMIA [None]
